FAERS Safety Report 4524410-7 (Version None)
Quarter: 2004Q4

REPORT INFORMATION
  Report Type: 
  Country: None (occurrence: None)
  Receive Date: 20041117
  Receipt Date: 20040501
  Transmission Date: 20050328
  Serious: Yes (Hospitalization, Other)
  Sender: FDA-Public Use
  Company Number: 2004S1003110

PATIENT
  Age: 67 Year
  Sex: Male

DRUGS (8)
  1. APO-GO(APOMORPHINE HCL)10 MG/ML BRITANNIA [Suspect]
     Indication: PARKINSON'S DISEASE
     Dosage: 60MG OVER 12 HOURS, SUBCUTANEOUS
     Route: 058
     Dates: start: 20040225
  2. SELEGELINE (1.25MG/DAY) [Concomitant]
  3. NIFEDINE (20MG/DAY) [Concomitant]
  4. NITROGLYCERIN SPARY [Concomitant]
  5. CARBIDOPA/LEVODOPA(62.5MG/DAY) [Concomitant]
  6. CARBEGOLINE (3MG/DAY) [Concomitant]
  7. CARBIDOPA/LEVODOPA CR [Concomitant]
  8. ATENOLOL [Concomitant]

REACTIONS (1)
  - LEFT VENTRICULAR FAILURE [None]
